FAERS Safety Report 7263863-0 (Version None)
Quarter: 2011Q1

REPORT INFORMATION
  Report Type: 
  Country: None (occurrence: None)
  Receive Date: 20110120
  Receipt Date: 20110106
  Transmission Date: 20110831
  Serious: Yes (Hospitalization)
  Sender: FDA-Public Use
  Company Number: 8041225

PATIENT
  Sex: Male
  Weight: 64.9 kg

DRUGS (9)
  1. MIRAPEX [Concomitant]
  2. CEFDINIR [Concomitant]
  3. METHOTREXATE [Concomitant]
  4. CERTOLIZUMAB PEGOL [Suspect]
     Indication: RHEUMATOID ARTHRITIS
     Dosage: (400 MG 1X/MONTH, DOSE FREQ.: ONCE MONTHLY SUBCUTANEOUS)
     Route: 058
     Dates: start: 20040218
  5. AMBIEN [Concomitant]
  6. IBUPROFEN [Concomitant]
  7. PREDNISONE [Concomitant]
  8. XANAX [Concomitant]
  9. LEXAPRO [Concomitant]

REACTIONS (9)
  - DIZZINESS [None]
  - PENILE ULCERATION [None]
  - CHILLS [None]
  - THROAT LESION [None]
  - HYPERHIDROSIS [None]
  - HERPES SIMPLEX [None]
  - ORAL PAIN [None]
  - HYPOPHAGIA [None]
  - DYSPHAGIA [None]
